FAERS Safety Report 17050352 (Version 1)
Quarter: 2019Q4

REPORT INFORMATION
  Report Type: Spontaneous
  Country: US (occurrence: US)
  Receive Date: 20191119
  Receipt Date: 20191119
  Transmission Date: 20200122
  Serious: No
  Sender: FDA-Public Use
  Company Number: US-009507513-1911USA002056

PATIENT
  Age: 62 Year
  Sex: Male

DRUGS (3)
  1. NOXAFIL [Suspect]
     Active Substance: POSACONAZOLE
     Indication: SPOROTRICHOSIS
     Dosage: 300 MILLIGRAM, TWICE DAILY
     Route: 048
  2. NOXAFIL [Suspect]
     Active Substance: POSACONAZOLE
     Dosage: 300 MILLIGRAM, DAILY
     Route: 048
  3. AMBISOME [Concomitant]
     Active Substance: AMPHOTERICIN B
     Indication: SPOROTRICHOSIS
     Dosage: 5 MILLIGRAM/KILOGRAM, DAILY
     Route: 042

REACTIONS (1)
  - Product use in unapproved indication [Unknown]
